FAERS Safety Report 8065623-X (Version None)
Quarter: 2011Q4

REPORT INFORMATION
  Report Type: 
  Country: None (occurrence: None)
  Receive Date: 20111221
  Receipt Date: 20110125
  Transmission Date: 20120403
  Serious: Yes (Other)
  Sender: FDA-Public Use
  Company Number: PHHY2010US89773

PATIENT
  Age: 81 Year
  Sex: Female

DRUGS (5)
  1. CYCLOSPORINE [Concomitant]
  2. EXJADE [Suspect]
     Indication: IRON OVERLOAD
     Dosage: 1000 MG, DAILY, ORAL
     Route: 048
     Dates: start: 20101001
  3. EXJADE [Suspect]
     Indication: APLASTIC ANAEMIA
     Dosage: 1000 MG, DAILY, ORAL
     Route: 048
     Dates: start: 20101001
  4. AMICAR [Concomitant]
  5. BASILIXIMAB (BASILIXIMAB) [Concomitant]

REACTIONS (6)
  - PLATELET COUNT DECREASED [None]
  - MALAISE [None]
  - WHITE BLOOD CELL COUNT DECREASED [None]
  - NAUSEA [None]
  - GASTROINTESTINAL TOXICITY [None]
  - DIARRHOEA [None]
